FAERS Safety Report 24593231 (Version 3)
Quarter: 2025Q1

REPORT INFORMATION
  Report Type: Spontaneous
  Country: PL (occurrence: PL)
  Receive Date: 20241108
  Receipt Date: 20250208
  Transmission Date: 20250408
  Serious: Yes (Death, Hospitalization, Other)
  Sender: ABBVIE
  Company Number: PL-ABBVIE-5995160

PATIENT
  Age: 83 Year
  Sex: Male

DRUGS (4)
  1. VENETOCLAX [Suspect]
     Active Substance: VENETOCLAX
     Indication: Acute myeloid leukaemia
     Dosage: 200 MILLIGRAM DURATION TEXT: 28 DAYS PER CYCLE
     Route: 048
     Dates: start: 202304, end: 202410
  2. LEVOFLOXACIN [Concomitant]
     Active Substance: LEVOFLOXACIN
     Indication: Prophylaxis
  3. AZACITIDINE [Concomitant]
     Active Substance: AZACITIDINE
     Indication: Acute myeloid leukaemia
     Route: 058
  4. FLUCONAZOLE [Concomitant]
     Active Substance: FLUCONAZOLE
     Indication: Prophylaxis

REACTIONS (16)
  - Acute myeloid leukaemia [Fatal]
  - Myeloproliferative neoplasm [Recovered/Resolved with Sequelae]
  - Pain [Recovered/Resolved with Sequelae]
  - Blood creatinine increased [Recovered/Resolved with Sequelae]
  - Thrombocytopenia [Recovered/Resolved with Sequelae]
  - Bone marrow infiltration [Recovered/Resolved with Sequelae]
  - White blood cell count decreased [Unknown]
  - Aspartate aminotransferase increased [Recovered/Resolved with Sequelae]
  - Leukaemic infiltration [Recovered/Resolved with Sequelae]
  - Glomerular filtration rate decreased [Recovered/Resolved with Sequelae]
  - Chloroma [Recovered/Resolved with Sequelae]
  - Scrotal ulcer [Recovered/Resolved with Sequelae]
  - Dysuria [Recovered/Resolved with Sequelae]
  - Blood lactate dehydrogenase increased [Recovered/Resolved with Sequelae]
  - Alanine aminotransferase increased [Recovered/Resolved with Sequelae]
  - Cytopenia [Recovered/Resolved with Sequelae]

NARRATIVE: CASE EVENT DATE: 20230701
